FAERS Safety Report 8134040-6 (Version None)
Quarter: 2012Q1

REPORT INFORMATION
  Report Type: 
  Country: None (occurrence: None)
  Receive Date: 20120214
  Receipt Date: 20120202
  Transmission Date: 20120608
  Serious: Yes (Other)
  Sender: FDA-Public Use
  Company Number: US-BIOGENIDEC-2012BI002224

PATIENT
  Age: 54 Year
  Sex: Female

DRUGS (2)
  1. ZONISAMIDE [Concomitant]
     Indication: CONVULSION
  2. TYSABRI [Suspect]
     Indication: MULTIPLE SCLEROSIS
     Route: 042
     Dates: start: 20100723

REACTIONS (2)
  - CONVULSION [None]
  - RHINORRHOEA [None]
